FAERS Safety Report 8695581 (Version 2)
Quarter: 2012Q4

REPORT INFORMATION
  Report Type: Report from Study
  Country: JP (occurrence: None)
  Receive Date: 20120713
  Receipt Date: 20120810
  Transmission Date: 20130627
  Serious: Yes (Hospitalization)
  Sender: FDA-Public Use
  Company Number: TCI2012A03489

PATIENT
  Age: 60 Year
  Sex: Male

DRUGS (5)
  1. ACTOS [Suspect]
     Indication: TYPE 2 DIABETES MELLITUS
     Dosage: 15 MG (15 MG, 1 D) PER ORAL
     Route: 048
     Dates: start: 20090725, end: 20110510
  2. BLOPRESS [Concomitant]
  3. MEDET (METFORMIN HYDROCHLORIDE) [Concomitant]
  4. INSULINS AND ANALOGUES [Concomitant]
  5. LIPITOR (ATORVASTATIN CALCIUM) [Concomitant]

REACTIONS (2)
  - Bile duct stone [None]
  - Cholelithiasis [None]
